FAERS Safety Report 4701579-2 (Version None)
Quarter: 2005Q2

REPORT INFORMATION
  Report Type: 
  Country: None (occurrence: None)
  Receive Date: 20050628
  Receipt Date: 20050210
  Transmission Date: 20051028
  Serious: Yes (Hospitalization)
  Sender: FDA-Public Use
  Company Number: 2005AP01165

PATIENT
  Age: 944 Month
  Sex: Male

DRUGS (4)
  1. CASODEX [Suspect]
     Indication: PROSTATE CANCER
     Route: 048
     Dates: start: 20030101, end: 20050101
  2. ZOLADEX [Suspect]
     Indication: PROSTATE CANCER
     Route: 058
     Dates: start: 20030101, end: 20050101
  3. LORCAM [Suspect]
     Indication: SPINAL COLUMN STENOSIS
     Route: 048
     Dates: end: 20050101
  4. MYONAL [Suspect]
     Indication: SPINAL COLUMN STENOSIS
     Route: 048
     Dates: end: 20050101

REACTIONS (7)
  - ASPARTATE AMINOTRANSFERASE INCREASED [None]
  - BILIRUBIN CONJUGATED INCREASED [None]
  - BLOOD BILIRUBIN INCREASED [None]
  - HAEMOLYTIC ANAEMIA [None]
  - JAUNDICE [None]
  - PLATELET COUNT DECREASED [None]
  - SPLENOMEGALY [None]
